FAERS Safety Report 7304389-5 (Version None)
Quarter: 2011Q1

REPORT INFORMATION
  Report Type: 
  Country: None (occurrence: None)
  Receive Date: 20110221
  Receipt Date: 20110210
  Transmission Date: 20110831
  Serious: Yes (Other)
  Sender: FDA-Public Use
  Company Number: PHHY2011BR11292

PATIENT
  Sex: Male

DRUGS (1)
  1. RITALIN [Suspect]
     Dosage: 10 MG, UNK

REACTIONS (4)
  - EXPIRED DRUG ADMINISTERED [None]
  - FEELING ABNORMAL [None]
  - SYNCOPE [None]
  - CONVULSION [None]
